FAERS Safety Report 4733947-7 (Version None)
Quarter: 2005Q3

REPORT INFORMATION
  Report Type: 
  Country: None (occurrence: None)
  Receive Date: 20050721
  Receipt Date: 20050512
  Transmission Date: 20060218
  Serious: No
  Sender: FDA-Public Use
  Company Number: 2005SP000726

PATIENT
  Age: 59 Year
  Sex: Female
  Weight: 52.1637 kg

DRUGS (2)
  1. LUNESTA [Suspect]
     Dosage: 3 MG; 6 MG; HS : ORAL
     Route: 048
     Dates: start: 20050511, end: 20050512
  2. LUNESTA [Suspect]
     Dosage: 3 MG; 6 MG; HS : ORAL
     Route: 048
     Dates: start: 20050513, end: 20050515

REACTIONS (4)
  - DRUG INEFFECTIVE [None]
  - DYSGEUSIA [None]
  - DYSPEPSIA [None]
  - INSOMNIA [None]
